FAERS Safety Report 5339672-6 (Version None)
Quarter: 2007Q2

REPORT INFORMATION
  Report Type: 
  Country: None (occurrence: None)
  Receive Date: 20070404
  Receipt Date: 20060927
  Transmission Date: 20071010
  Serious: Yes (Other)
  Sender: FDA-Public Use
  Company Number: 2006116427

PATIENT
  Sex: Male
  Weight: 89.8122 kg

DRUGS (6)
  1. GEODON [Suspect]
     Indication: BIPOLAR DISORDER
     Dosage: 240 MG (240 MG, 1 IN 1 D)
     Dates: start: 20030101
  2. PROLIXIN [Suspect]
  3. TOPAMAX [Concomitant]
  4. LITHIUM CARBONATE [Concomitant]
  5. ANTIHYPERTENSIVES (ANTIHYPERTENSIVES) [Concomitant]
  6. LAMICTAL [Concomitant]

REACTIONS (2)
  - CEREBROVASCULAR ACCIDENT [None]
  - CONVULSION [None]
